FAERS Safety Report 24452741 (Version 4)
Quarter: 2025Q1

REPORT INFORMATION
  Report Type: Report from Study
  Country: CA (occurrence: CA)
  Receive Date: 20241017
  Receipt Date: 20250303
  Transmission Date: 20250409
  Serious: Yes (Other)
  Sender: CSL BEHRING
  Company Number: CA-BEH-2024177669

PATIENT
  Age: 80 Year
  Sex: Female
  Weight: 65 kg

DRUGS (5)
  1. HIZENTRA [Suspect]
     Active Substance: HUMAN IMMUNOGLOBULIN G
     Indication: Secondary immunodeficiency
     Dosage: 8 G, QW
     Route: 065
     Dates: start: 20240806
  2. HIZENTRA [Suspect]
     Active Substance: HUMAN IMMUNOGLOBULIN G
     Route: 065
     Dates: start: 20240904
  3. HIZENTRA [Suspect]
     Active Substance: HUMAN IMMUNOGLOBULIN G
     Dosage: 8 G, QW
     Route: 065
     Dates: start: 20240806
  4. HIZENTRA [Suspect]
     Active Substance: HUMAN IMMUNOGLOBULIN G
     Dosage: 8 G, QW
     Route: 065
  5. AVAPRO [Concomitant]
     Active Substance: IRBESARTAN
     Indication: Hypertension

REACTIONS (19)
  - Haematochezia [Unknown]
  - Hypertension [Not Recovered/Not Resolved]
  - Blood iron decreased [Unknown]
  - Limb injury [Unknown]
  - Phlebitis [Unknown]
  - Pain in extremity [Unknown]
  - Injection site oedema [Unknown]
  - Limb discomfort [Unknown]
  - Injection site oedema [Unknown]
  - Injection site erythema [Unknown]
  - Injection site oedema [Unknown]
  - Injection site erythema [Unknown]
  - Injection site oedema [Unknown]
  - Injection site erythema [Unknown]
  - Injection site swelling [Unknown]
  - Injection site swelling [Unknown]
  - Cough [Unknown]
  - Malaise [Unknown]
  - Fatigue [Unknown]

NARRATIVE: CASE EVENT DATE: 20240924
